FAERS Safety Report 16813493 (Version 1)
Quarter: 2019Q3

REPORT INFORMATION
  Report Type: Spontaneous
  Country: FR (occurrence: FR)
  Receive Date: 20190917
  Receipt Date: 20190917
  Transmission Date: 20191005
  Serious: No
  Sender: FDA-Public Use
  Company Number: FR-BEH-2019106281

PATIENT
  Age: 27 Year
  Sex: Female
  Weight: 37 kg

DRUGS (1)
  1. PRIVIGEN [Suspect]
     Active Substance: HUMAN IMMUNOGLOBULIN G
     Indication: TRANSPLANT REJECTION
     Dosage: 40 GRAM, TOT
     Route: 041
     Dates: start: 20190815, end: 20190815

REACTIONS (1)
  - Vomiting [Recovered/Resolved]
